FAERS Safety Report 19174879 (Version 1)
Quarter: 2021Q2

REPORT INFORMATION
  Report Type: Spontaneous
  Country: CN (occurrence: CN)
  Receive Date: 20210423
  Receipt Date: 20210423
  Transmission Date: 20210717
  Serious: Yes (Other)
  Sender: FDA-Public Use
  Company Number: CN-ROCHE-2810642

PATIENT
  Age: 20 Year
  Sex: Male

DRUGS (16)
  1. DEXAMETHASONE. [Concomitant]
     Active Substance: DEXAMETHASONE
     Indication: CYTOKINE RELEASE SYNDROME
     Dates: start: 20190815
  2. DEXAMETHASONE. [Concomitant]
     Active Substance: DEXAMETHASONE
     Dates: start: 20190817
  3. DEXAMETHASONE. [Concomitant]
     Active Substance: DEXAMETHASONE
     Dates: start: 20190818
  4. CASPOFUNGIN ACETATE. [Concomitant]
     Active Substance: CASPOFUNGIN ACETATE
     Indication: CYTOKINE RELEASE SYNDROME
     Dates: start: 20190815
  5. FLUDARABINE [Concomitant]
     Active Substance: FLUDARABINE PHOSPHATE
     Indication: ACUTE LYMPHOCYTIC LEUKAEMIA
     Dates: start: 20190802
  6. VORICONAZOLE. [Concomitant]
     Active Substance: VORICONAZOLE
     Indication: CYTOKINE RELEASE SYNDROME
     Dates: start: 20190814
  7. ACTEMRA [Suspect]
     Active Substance: TOCILIZUMAB
     Indication: CYTOKINE RELEASE SYNDROME
     Route: 065
     Dates: start: 20190813
  8. AMIKACIN. [Concomitant]
     Active Substance: AMIKACIN
     Indication: CYTOKINE RELEASE SYNDROME
     Dates: start: 20190814
  9. MEROPENEM. [Concomitant]
     Active Substance: MEROPENEM
     Indication: CYTOKINE RELEASE SYNDROME
     Dates: start: 20190813
  10. MANNITOL. [Concomitant]
     Active Substance: MANNITOL
     Indication: CYTOKINE RELEASE SYNDROME
     Dates: start: 20190815
  11. MANNITOL. [Concomitant]
     Active Substance: MANNITOL
     Dates: start: 20190817
  12. CYCLOPHOSPHAMIDE. [Concomitant]
     Active Substance: CYCLOPHOSPHAMIDE
     Indication: ACUTE LYMPHOCYTIC LEUKAEMIA
     Dates: start: 20190802
  13. MANNITOL. [Concomitant]
     Active Substance: MANNITOL
     Dates: start: 20190818
  14. ACTEMRA [Suspect]
     Active Substance: TOCILIZUMAB
     Route: 065
     Dates: start: 20190814
  15. DEXAMETHASONE. [Concomitant]
     Active Substance: DEXAMETHASONE
     Dates: start: 20190816
  16. TEICOPLANIN [Concomitant]
     Active Substance: TEICOPLANIN
     Indication: CYTOKINE RELEASE SYNDROME
     Dates: start: 20190816

REACTIONS (3)
  - Immune effector cell-associated neurotoxicity syndrome [Unknown]
  - Off label use [Unknown]
  - Abdominal distension [Unknown]

NARRATIVE: CASE EVENT DATE: 20190815
